FAERS Safety Report 8807494 (Version 1)
Quarter: 2012Q4

REPORT INFORMATION
  Report Type: 
  Country: US (occurrence: US)
  Receive Date: 20120925
  Receipt Date: 20120925
  Transmission Date: 20130627
  Serious: No
  Sender: FDA-Public Use
  Company Number: US-ASTRAZENECA-2012SE72488

PATIENT
  Age: 72 Year
  Sex: Female
  Weight: 75.3 kg

DRUGS (7)
  1. ANASTROZOLE [Suspect]
     Indication: BREAST CANCER
     Route: 048
  2. CRESTOR [Suspect]
     Route: 048
  3. SINGULAIR [Concomitant]
     Indication: MULTIPLE ALLERGIES
  4. SINGULAIR [Concomitant]
     Indication: CHRONIC OBSTRUCTIVE PULMONARY DISEASE
  5. ADVAIR DISKUS [Concomitant]
     Indication: MULTIPLE ALLERGIES
  6. ADVAIR DISKUS [Concomitant]
     Indication: CHRONIC OBSTRUCTIVE PULMONARY DISEASE
  7. RESTASIS [Concomitant]
     Indication: DRY EYE

REACTIONS (2)
  - Musculoskeletal discomfort [Unknown]
  - Fatigue [Unknown]
